FAERS Safety Report 9776177 (Version 2)
Quarter: 2013Q4

REPORT INFORMATION
  Report Type: Report from Study
  Country: DE (occurrence: DE)
  Receive Date: 20131220
  Receipt Date: 20131220
  Transmission Date: 20140711
  Serious: Yes (Hospitalization)
  Sender: FDA-Public Use
  Company Number: DE-OTSUKA-02100-EUR-07-0064

PATIENT
  Age: 65 Year
  Sex: Male

DRUGS (6)
  1. PLETAL [Suspect]
     Indication: INTERMITTENT CLAUDICATION
     Dosage: 100 MG, BID
     Route: 048
     Dates: start: 20070315, end: 20070326
  2. THEOPHYLLINE [Concomitant]
     Dosage: UNK UNKNOWN, UNKNOWN
     Route: 065
  3. NEBIVOLOL [Concomitant]
     Dosage: UNK UNKNOWN, UNKNOWN
     Route: 065
  4. DIGITOXIN [Concomitant]
     Dosage: UNK UNKNOWN, UNKNOWN
     Route: 065
  5. ACETYLSALICYLIC ACID [Concomitant]
     Dosage: UNK UNKNOWN, UNKNOWN
     Route: 065
  6. SIMVASTATIN [Concomitant]
     Dosage: UNK UNKNOWN, UNKNOWN
     Route: 065

REACTIONS (4)
  - Infective exacerbation of chronic obstructive airways disease [Recovered/Resolved]
  - Sinus tachycardia [Recovered/Resolved]
  - Headache [Recovered/Resolved]
  - Hyperkalaemia [Unknown]
